FAERS Safety Report 6753153-4 (Version None)
Quarter: 2010Q2

REPORT INFORMATION
  Report Type: 
  Country: None (occurrence: None)
  Receive Date: 20100603
  Receipt Date: 20100524
  Transmission Date: 20101027
  Serious: Yes (Other)
  Sender: FDA-Public Use
  Company Number: US-PFIZER INC-2010065095

PATIENT
  Sex: Female
  Weight: 57.596 kg

DRUGS (2)
  1. CHANTIX [Suspect]
     Indication: SMOKING CESSATION THERAPY
     Dosage: 0.5 MG DAILY
     Route: 048
     Dates: start: 20100501
  2. CHANTIX [Suspect]
     Dosage: UNK
     Route: 048
     Dates: start: 20100501

REACTIONS (2)
  - HYPERSENSITIVITY [None]
  - OROPHARYNGEAL BLISTERING [None]
